FAERS Safety Report 9444663 (Version 1)
Quarter: 2013Q3

REPORT INFORMATION
  Report Type: Spontaneous
  Country: US (occurrence: None)
  Receive Date: 20130806
  Receipt Date: 20130806
  Transmission Date: 20140515
  Serious: No
  Sender: FDA-Public Use
  Company Number: None

PATIENT
  Age: 43 Year
  Sex: Female
  Weight: 64.86 kg

DRUGS (2)
  1. CREST PRO-HEALTH MULTI-PROTECTION REFRESHING CLEAN MINT [Suspect]
     Indication: DENTAL CARE
     Dosage: SWISHED IN THE MOUTH
     Dates: start: 20130718, end: 20130718
  2. BEYAZ [Concomitant]

REACTIONS (1)
  - Hypogeusia [None]
